FAERS Safety Report 12111657 (Version 1)
Quarter: 2016Q1

REPORT INFORMATION
  Report Type: Spontaneous
  Country: US (occurrence: US)
  Receive Date: 20160224
  Receipt Date: 20160224
  Transmission Date: 20160526
  Serious: No
  Sender: FDA-Public Use
  Company Number: US-JAZZ-2015-US-020876

PATIENT
  Age: 66 Year
  Sex: Male

DRUGS (5)
  1. PRIALT [Suspect]
     Active Substance: ZICONOTIDE ACETATE
     Dosage: 0.075 ?G, QH
     Route: 037
     Dates: start: 20150707, end: 20150731
  2. PRIALT [Suspect]
     Active Substance: ZICONOTIDE ACETATE
     Dosage: 0.094 ?G, QH
     Route: 037
     Dates: start: 20150731, end: 20150825
  3. PRIALT [Suspect]
     Active Substance: ZICONOTIDE ACETATE
     Dosage: UNK ?G, QH
     Route: 037
     Dates: start: 20150825, end: 20150925
  4. PRIALT [Suspect]
     Active Substance: ZICONOTIDE ACETATE
     Indication: PAIN
     Dosage: 0.05 ?G, QH
     Route: 037
     Dates: start: 20150529, end: 20150707
  5. PRIALT [Suspect]
     Active Substance: ZICONOTIDE ACETATE
     Dosage: 0.125 ?G, QH
     Route: 037
     Dates: start: 20150925

REACTIONS (2)
  - Device issue [Unknown]
  - Fatigue [Unknown]

NARRATIVE: CASE EVENT DATE: 20150601
